FAERS Safety Report 5874613-4 (Version None)
Quarter: 2008Q3

REPORT INFORMATION
  Report Type: 
  Country: None (occurrence: None)
  Receive Date: 20080908
  Receipt Date: 20080908
  Transmission Date: 20090109
  Serious: Yes (Life-Threatening, Hospitalization)
  Sender: FDA-Public Use
  Company Number: None

PATIENT
  Sex: Male

DRUGS (1)
  1. DIGOXIN [Suspect]

REACTIONS (6)
  - ARRHYTHMIA [None]
  - FALL [None]
  - OVERDOSE [None]
  - RENAL FAILURE [None]
  - SYNCOPE [None]
  - THERAPEUTIC AGENT TOXICITY [None]
